FAERS Safety Report 8290129-2 (Version None)
Quarter: 2012Q2

REPORT INFORMATION
  Report Type: 
  Country: None (occurrence: None)
  Receive Date: 20120417
  Receipt Date: 20120412
  Transmission Date: 20120825
  Serious: Yes (Hospitalization)
  Sender: FDA-Public Use
  Company Number: PHHO2010BR18156

PATIENT
  Sex: Female
  Weight: 56 kg

DRUGS (8)
  1. COMPARATOR TRASTUZUMAB [Suspect]
     Indication: BREAST CANCER METASTATIC
     Dosage: 2 MG/KG
     Route: 042
     Dates: start: 20100914, end: 20101116
  2. PACLITAXEL [Suspect]
     Indication: BREAST CANCER METASTATIC
     Dosage: 80 MG/M2
     Route: 042
     Dates: start: 20100914, end: 20101116
  3. AFINITOR [Suspect]
     Dosage: CODE NOT BROKEN
     Route: 048
     Dates: start: 20101214
  4. SIMVASTATIN [Concomitant]
     Indication: HYPERCHOLESTEROLAEMIA
  5. OMEPRAZOLE [Concomitant]
     Indication: ABDOMINAL PAIN UPPER
  6. COMPARATOR TRASTUZUMAB [Suspect]
     Dosage: 2 MG/KG
     Route: 042
     Dates: start: 20101207
  7. PACLITAXEL [Suspect]
     Dosage: 80 MG/M2
     Route: 042
     Dates: start: 20101214
  8. AFINITOR [Suspect]
     Indication: BREAST CANCER METASTATIC
     Dosage: UNK
     Route: 048
     Dates: start: 20100914, end: 20101122

REACTIONS (6)
  - DYSPNOEA [None]
  - PYREXIA [None]
  - LYMPHANGITIS [None]
  - DEVICE RELATED INFECTION [None]
  - PNEUMONIA [None]
  - STAPHYLOCOCCAL INFECTION [None]
